FAERS Safety Report 5382497-6 (Version None)
Quarter: 2007Q3

REPORT INFORMATION
  Report Type: 
  Country: None (occurrence: None)
  Receive Date: 20070703
  Receipt Date: 20060724
  Transmission Date: 20080115
  Serious: Yes (Other)
  Sender: FDA-Public Use
  Company Number: US-JNJFOC-20060503399

PATIENT
  Age: 51 Year
  Sex: Female
  Weight: 92.9874 kg

DRUGS (4)
  1. MOTRIN IB [Suspect]
     Indication: ARTHRITIS
     Dosage: 600 MG, IN 1 DAY; ORAL
     Route: 048
     Dates: start: 20060514, end: 20060514
  2. MOTRIN IB [Suspect]
     Indication: CARPAL TUNNEL SYNDROME
     Dosage: 600 MG, IN 1 DAY; ORAL
     Route: 048
     Dates: start: 20060514, end: 20060514
  3. SYNTHROID [Concomitant]
  4. PRINZIDE [Concomitant]

REACTIONS (2)
  - ANGIOEDEMA [None]
  - REACTION TO DRUG EXCIPIENTS [None]
